FAERS Safety Report 16709894 (Version 1)
Quarter: 2019Q3

REPORT INFORMATION
  Report Type: Spontaneous
  Country: US (occurrence: US)
  Receive Date: 20190816
  Receipt Date: 20190816
  Transmission Date: 20191004
  Serious: No
  Sender: FDA-Public Use
  Company Number: US-PFIZER INC-2019205974

PATIENT
  Age: 55 Year
  Sex: Male

DRUGS (1)
  1. VIAGRA [Suspect]
     Active Substance: SILDENAFIL CITRATE
     Indication: LIMB DISCOMFORT
     Dosage: 100 MG, UNK

REACTIONS (3)
  - Somnolence [Unknown]
  - Drug effective for unapproved indication [Unknown]
  - Off label use [Unknown]
